FAERS Safety Report 8283717-0 (Version None)
Quarter: 2012Q2

REPORT INFORMATION
  Report Type: 
  Country: None (occurrence: None)
  Receive Date: 20120413
  Receipt Date: 20110816
  Transmission Date: 20120825
  Serious: No
  Sender: FDA-Public Use
  Company Number: US-ASTRAZENECA-2011SE49075

PATIENT
  Age: 55 Year
  Sex: Female

DRUGS (11)
  1. SYNTHROID [Concomitant]
  2. RITALIN [Concomitant]
  3. IMITREX [Concomitant]
  4. PHENERGAN HCL [Concomitant]
  5. NEXIUM [Suspect]
     Indication: GASTROOESOPHAGEAL REFLUX DISEASE
     Route: 048
     Dates: start: 20100701
  6. KLONOPIN [Concomitant]
  7. ROPINIROLE [Concomitant]
  8. SEROQUEL [Suspect]
     Route: 048
     Dates: end: 20110101
  9. LOMOTIL [Concomitant]
  10. SEROQUEL [Suspect]
     Indication: BIPOLAR DISORDER
     Route: 048
     Dates: start: 20070101
  11. PROBIOTIC [Concomitant]

REACTIONS (9)
  - MYALGIA [None]
  - DIARRHOEA [None]
  - AMNESIA [None]
  - HAEMATOCHEZIA [None]
  - FEELING DRUNK [None]
  - POLYP [None]
  - ARTHRALGIA [None]
  - FALL [None]
  - COLITIS [None]
